FAERS Safety Report 25849771 (Version 1)
Quarter: 2025Q3

REPORT INFORMATION
  Report Type: Report from Study
  Country: US (occurrence: US)
  Receive Date: 20250926
  Receipt Date: 20250926
  Transmission Date: 20251021
  Serious: Yes (Other)
  Sender: JOHNSON AND JOHNSON
  Company Number: US-JNJFOC-20250936715

PATIENT
  Age: 31 Year
  Sex: Female

DRUGS (1)
  1. SPRAVATO [Suspect]
     Active Substance: ESKETAMINE
     Indication: Depression
     Route: 045
     Dates: start: 20250917, end: 20250917

REACTIONS (5)
  - Anxiety [Recovered/Resolved]
  - Sedation [Recovered/Resolved]
  - Dissociation [Recovered/Resolved]
  - Physical examination abnormal [Unknown]
  - Oxygen saturation abnormal [Unknown]

NARRATIVE: CASE EVENT DATE: 20250917
